FAERS Safety Report 9571566 (Version 2)
Quarter: 2013Q4

REPORT INFORMATION
  Report Type: Spontaneous
  Country: BR (occurrence: None)
  Receive Date: 20130927
  Receipt Date: 20131023
  Transmission Date: 20140711
  Serious: Yes (Other)
  Sender: FDA-Public Use
  Company Number: ENTC2013-0340

PATIENT
  Age: 72 Year
  Sex: Female

DRUGS (9)
  1. STALEVO [Suspect]
     Indication: PARKINSON^S DISEASE
     Dosage: 2-3 TIMES DAILY (50 WITH 30 TABLETS); STRENGTH: 50 MG
     Dates: end: 20130908
  2. STABIL [Suspect]
     Indication: PARKINSON^S DISEASE
     Dates: end: 20130902
  3. PROLOPA [Concomitant]
  4. RIVOTRIL [Concomitant]
  5. LOSARTAN [Concomitant]
  6. HYDROCHLOROTHIAZIDE [Concomitant]
  7. DIOSMIN [Concomitant]
  8. DIELOFT [Concomitant]
  9. MELOXICAM [Concomitant]

REACTIONS (3)
  - Petit mal epilepsy [None]
  - Hallucination [None]
  - Feeling abnormal [None]
